FAERS Safety Report 23346580 (Version 1)
Quarter: 2023Q4

REPORT INFORMATION
  Report Type: Spontaneous
  Country: US (occurrence: US)
  Receive Date: 20231228
  Receipt Date: 20231228
  Transmission Date: 20240110
  Serious: Yes (Other)
  Sender: FDA-Public Use
  Company Number: US-ARBOR PHARMACEUTICALS, LLC-US-2023ARB005047

PATIENT
  Age: 82 Year
  Sex: Male

DRUGS (4)
  1. GABAPENTIN ENACARBIL [Suspect]
     Active Substance: GABAPENTIN ENACARBIL
     Indication: Trigeminal neuralgia
     Dosage: UNK
  2. BACLOFEN [Suspect]
     Active Substance: BACLOFEN
     Indication: Trigeminal neuralgia
     Dosage: UNK
  3. OXCARBAZEPINE [Suspect]
     Active Substance: OXCARBAZEPINE
     Indication: Trigeminal neuralgia
     Dosage: 750 MG, BID
  4. OXCARBAZEPINE [Suspect]
     Active Substance: OXCARBAZEPINE
     Dosage: 600 MG, BID

REACTIONS (4)
  - Syncope [Unknown]
  - Dizziness [Unknown]
  - Balance disorder [Unknown]
  - Product use in unapproved indication [Unknown]
